FAERS Safety Report 6935884-6 (Version None)
Quarter: 2010Q3

REPORT INFORMATION
  Report Type: 
  Country: None (occurrence: None)
  Receive Date: 20100817
  Receipt Date: 20100806
  Transmission Date: 20110219
  Serious: Yes (Other)
  Sender: FDA-Public Use
  Company Number: DSA_43690_2010

PATIENT
  Sex: Female

DRUGS (1)
  1. TIAZAC [Suspect]
     Indication: PRODUCT USED FOR UNKNOWN INDICATION
     Dosage: 360 MG, (TOTAL DAILY DOSE), ORAL
     Route: 048

REACTIONS (1)
  - CONVULSION [None]
